FAERS Safety Report 23136306 (Version 2)
Quarter: 2023Q4

REPORT INFORMATION
  Report Type: Spontaneous
  Country: CH (occurrence: CH)
  Receive Date: 20231102
  Receipt Date: 20231114
  Transmission Date: 20240110
  Serious: Yes (Other)
  Sender: FDA-Public Use
  Company Number: None

PATIENT
  Age: 25 Year
  Sex: Male

DRUGS (3)
  1. FINASTERIDE [Suspect]
     Active Substance: FINASTERIDE
     Indication: Androgenetic alopecia
     Dosage: 1 MILLIGRAM
     Route: 048
  2. MINOXIDIL SULFATE [Suspect]
     Active Substance: MINOXIDIL SULFATE
     Indication: Androgenetic alopecia
     Dosage: UNK, OD (ONCE DAILY FOR 4 YEARS WITHOUT SUCCESS)
     Route: 061
  3. MINOXIDIL SULFATE [Suspect]
     Active Substance: MINOXIDIL SULFATE
     Dosage: UNK, BID (5 PERCENT) MINOXIDIL
     Route: 061

REACTIONS (2)
  - Delusional disorder, somatic type [Unknown]
  - Therapy partial responder [Unknown]
